FAERS Safety Report 7757655-3 (Version None)
Quarter: 2011Q3

REPORT INFORMATION
  Report Type: 
  Country: None (occurrence: None)
  Receive Date: 20110916
  Receipt Date: 20110902
  Transmission Date: 20111222
  Serious: Yes (Other)
  Sender: FDA-Public Use
  Company Number: PHHY2011BR78832

PATIENT
  Sex: Female

DRUGS (4)
  1. DIOVAN [Suspect]
     Indication: HYPERTENSION
     Dosage: 160 MG (1 TABLET AT NIGHT)
     Dates: start: 20110701
  2. SOMALGIN [Concomitant]
     Indication: ANGINA PECTORIS
     Dosage: 1 DF DAILY
     Route: 048
     Dates: start: 20110701
  3. EXFORGE HCT [Suspect]
     Indication: HYPERTENSION
     Dosage: 1 DF (160/12.5/5MG) 1 TABLET IN THE MORNING
     Route: 048
     Dates: start: 20110101
  4. ALDACTONE [Concomitant]
     Indication: ANGINA PECTORIS
     Dosage: 20 MG (1 TABLET DAILY)
     Route: 048
     Dates: start: 20110701

REACTIONS (3)
  - TONSILLITIS [None]
  - BLOOD PRESSURE INCREASED [None]
  - INFLUENZA [None]
